FAERS Safety Report 5993963-4 (Version None)
Quarter: 2008Q4

REPORT INFORMATION
  Report Type: 
  Country: None (occurrence: None)
  Receive Date: 20081212
  Receipt Date: 20080905
  Transmission Date: 20090506
  Serious: Yes (Other)
  Sender: FDA-Public Use
  Company Number: B0535967A

PATIENT
  Age: 43 Year
  Sex: Female

DRUGS (2)
  1. LAMICTIN [Suspect]
     Indication: EPILEPSY
     Dosage: 100MG PER DAY
     Route: 048
     Dates: start: 20080101, end: 20080101
  2. VALPROATE SODIUM [Concomitant]

REACTIONS (4)
  - BALANCE DISORDER [None]
  - LOSS OF CONSCIOUSNESS [None]
  - PETIT MAL EPILEPSY [None]
  - VERTIGO [None]
